FAERS Safety Report 15579256 (Version 1)
Quarter: 2018Q4

REPORT INFORMATION
  Report Type: Spontaneous
  Country: US (occurrence: US)
  Receive Date: 20181029
  Receipt Date: 20181029
  Transmission Date: 20190205
  Serious: Yes (Hospitalization)
  Sender: FDA-Public Use
  Company Number: None

PATIENT
  Sex: Male

DRUGS (7)
  1. AMFEDIPINE [Concomitant]
  2. TIZANIDINE. [Concomitant]
     Active Substance: TIZANIDINE
  3. NOVOLOG [Concomitant]
     Active Substance: INSULIN ASPART
  4. ALLOPURINOL. [Concomitant]
     Active Substance: ALLOPURINOL
  5. TACROLIMUS 0.5MG CAPSULE [Suspect]
     Active Substance: TACROLIMUS
  6. HYDROXYZ HCL [Concomitant]
     Active Substance: HYDROXYZINE HYDROCHLORIDE
  7. TACROLIMUS 0.5MG CAPSULE [Suspect]
     Active Substance: TACROLIMUS
     Indication: LIVER TRANSPLANT
     Dosage: ?          OTHER DOSE:1.5MG;?
     Route: 048
     Dates: start: 20160926

REACTIONS (3)
  - Nausea [None]
  - Infection [None]
  - Gait disturbance [None]
